FAERS Safety Report 9359206 (Version 3)
Quarter: 2013Q3

REPORT INFORMATION
  Report Type: Spontaneous
  Country: US (occurrence: US)
  Receive Date: 20130620
  Receipt Date: 20130708
  Transmission Date: 20140515
  Serious: Yes (Other)
  Sender: FDA-Public Use
  Company Number: US-ABBOTT-13P-163-1106147-00

PATIENT
  Sex: Female
  Weight: 50.39 kg

DRUGS (11)
  1. CREON [Suspect]
     Indication: PANCREATITIS CHRONIC
     Dosage: 48 PILLS DAILY OR MORE, 4 CAPSULES BY MOUTH BEFORE A MEAL OR WITH SNACK
     Route: 048
     Dates: start: 2006, end: 201306
  2. CREON [Suspect]
     Dosage: 4 CAPSULES WITH EACH MEAL/SNACK
     Route: 048
     Dates: start: 201306
  3. PAIN MEDICATION [Concomitant]
     Indication: BACK PAIN
  4. BYETTA [Concomitant]
     Indication: PRODUCT USED FOR UNKNOWN INDICATION
  5. JANUVIA [Concomitant]
     Indication: DIABETES MELLITUS
  6. BACLOFEN [Concomitant]
     Indication: MUSCLE SPASMS
  7. UNKNOWN PAIN INJECTIONS [Concomitant]
     Indication: BACK PAIN
     Route: 050
  8. HYDROCODONE [Concomitant]
     Indication: PAIN
     Dosage: TAKES 4 TIMES DAILY
  9. AMLODIPINE BESYLATE [Concomitant]
     Indication: HYPERTENSION
     Route: 048
  10. LISINOPRIL [Concomitant]
     Indication: HYPERTENSION
     Route: 048
  11. CYMBALTA [Concomitant]
     Indication: DEPRESSION
     Route: 048

REACTIONS (7)
  - Gallbladder perforation [Recovered/Resolved]
  - Physical assault [Recovered/Resolved]
  - Laceration [Recovered/Resolved]
  - Jaundice [Recovered/Resolved]
  - Abdominal distension [Not Recovered/Not Resolved]
  - Diarrhoea [Not Recovered/Not Resolved]
  - Flatulence [Not Recovered/Not Resolved]
